FAERS Safety Report 22021764 (Version 1)
Quarter: 2023Q1

REPORT INFORMATION
  Report Type: Spontaneous
  Country: US (occurrence: US)
  Receive Date: 20230222
  Receipt Date: 20230222
  Transmission Date: 20230418
  Serious: Yes (Hospitalization, Other)
  Sender: FDA-Public Use
  Company Number: US-drreddys-SPO/USA/23/0161235

PATIENT
  Age: 65 Year
  Sex: Male

DRUGS (1)
  1. HEPARIN SODIUM [Suspect]
     Active Substance: HEPARIN SODIUM
     Indication: Renal artery stent placement
     Dosage: BONDED STENT-GRAFTS

REACTIONS (3)
  - Haematochezia [Recovered/Resolved]
  - Skin necrosis [Recovered/Resolved]
  - Heparin-induced thrombocytopenia [Recovered/Resolved]
